FAERS Safety Report 6930829-7 (Version None)
Quarter: 2010Q3

REPORT INFORMATION
  Report Type: 
  Country: None (occurrence: None)
  Receive Date: 20100818
  Receipt Date: 20100808
  Transmission Date: 20110219
  Serious: Yes (Hospitalization)
  Sender: FDA-Public Use
  Company Number: US-US-EMD SERONO, INC.-7013939

PATIENT
  Sex: Female

DRUGS (1)
  1. REBIF [Suspect]
     Indication: PRODUCT USED FOR UNKNOWN INDICATION
     Route: 058
     Dates: start: 20100519, end: 20100804

REACTIONS (6)
  - ALOPECIA [None]
  - BLINDNESS [None]
  - CENTRAL NERVOUS SYSTEM LESION [None]
  - EYE PAIN [None]
  - MUSCULAR WEAKNESS [None]
  - WEIGHT DECREASED [None]
